FAERS Safety Report 4805446-5 (Version None)
Quarter: 2005Q4

REPORT INFORMATION
  Report Type: 
  Country: None (occurrence: None)
  Receive Date: 20051018
  Receipt Date: 20051006
  Transmission Date: 20060501
  Serious: Yes (Hospitalization)
  Sender: FDA-Public Use
  Company Number: 2005125779

PATIENT
  Age: 59 Year
  Sex: Male

DRUGS (6)
  1. LYRICA [Suspect]
     Indication: BACK PAIN
     Dosage: 150 MG (75 MG, 2 IN 1 D), ORAL
     Route: 048
  2. MORPHINE [Concomitant]
  3. DIURETICS (DIURETICS) [Concomitant]
  4. ALL OTHER THERAPEUTIIC  PRODUCTS (ALL OTHER THERAPEUTIC PRODUCTS) [Concomitant]
  5. DOXORUBICIN HCL [Concomitant]
  6. VINCRISTINE [Concomitant]

REACTIONS (3)
  - BLOOD SODIUM DECREASED [None]
  - CONFUSIONAL STATE [None]
  - SOMNOLENCE [None]
